FAERS Safety Report 6202354-2 (Version None)
Quarter: 2009Q2

REPORT INFORMATION
  Report Type: 
  Country: None (occurrence: None)
  Receive Date: 20090526
  Receipt Date: 20090515
  Transmission Date: 20091009
  Serious: Yes (Death)
  Sender: FDA-Public Use
  Company Number: TH-BAXTER-2009BH008847

PATIENT
  Age: 86 Year
  Sex: Male

DRUGS (1)
  1. DIANEAL [Suspect]
     Indication: RENAL FAILURE CHRONIC
     Route: 033

REACTIONS (2)
  - CARDIAC DISORDER [None]
  - CARDIAC FAILURE [None]
